FAERS Safety Report 22302843 (Version 1)
Quarter: 2023Q2

REPORT INFORMATION
  Report Type: Spontaneous
  Country: US (occurrence: US)
  Receive Date: 20230510
  Receipt Date: 20230510
  Transmission Date: 20230721
  Serious: No
  Sender: FDA-Public Use
  Company Number: US-ELI_LILLY_AND_COMPANY-US202305002624

PATIENT
  Sex: Female

DRUGS (1)
  1. FORTEO [Suspect]
     Active Substance: TERIPARATIDE
     Indication: Osteoporosis
     Dosage: 20 UG, UNKNOWN
     Route: 058
     Dates: start: 202211

REACTIONS (18)
  - Chills [Recovered/Resolved]
  - Dysphagia [Not Recovered/Not Resolved]
  - Myalgia [Not Recovered/Not Resolved]
  - Palpitations [Recovered/Resolved]
  - Disturbance in attention [Recovered/Resolved]
  - Photophobia [Recovered/Resolved]
  - Feeling abnormal [Recovered/Resolved]
  - Bone pain [Recovered/Resolved]
  - Pain in extremity [Recovered/Resolved]
  - Skin laceration [Unknown]
  - Abnormal faeces [Recovered/Resolved]
  - Fatigue [Not Recovered/Not Resolved]
  - Arthralgia [Recovered/Resolved]
  - Headache [Recovered/Resolved]
  - Vertigo [Recovered/Resolved]
  - Diarrhoea [Recovered/Resolved]
  - Nausea [Recovered/Resolved]
  - Muscle spasms [Recovering/Resolving]
